FAERS Safety Report 11617323 (Version 2)
Quarter: 2016Q1

REPORT INFORMATION
  Report Type: Spontaneous
  Country: US (occurrence: US)
  Receive Date: 20151009
  Receipt Date: 20160105
  Transmission Date: 20160525
  Serious: Yes (Other)
  Sender: FDA-Public Use
  Company Number: US-ASTRAZENECA-2015SE94026

PATIENT
  Age: 671 Month
  Sex: Female
  Weight: 61.2 kg

DRUGS (17)
  1. PRIMROSE OIL [Concomitant]
     Indication: HORMONE LEVEL ABNORMAL
     Dosage: UNKNOWN DOSE, DAILY
     Route: 048
  2. CHONDROITIN [Suspect]
     Active Substance: CHONDROITIN
     Dosage: UNKNOWN
     Route: 065
  3. OXYCODONE [Concomitant]
     Active Substance: OXYCODONE
     Indication: PAIN
     Route: 048
     Dates: start: 2011
  4. CLONAZEPAM. [Concomitant]
     Active Substance: CLONAZEPAM
     Indication: MIGRAINE
     Route: 048
  5. COLACE [Concomitant]
     Active Substance: DOCUSATE SODIUM
     Indication: FAECES HARD
     Dosage: UNKNOWN DOSE, AT NIGHT
  6. MOVANTIK [Suspect]
     Active Substance: NALOXEGOL OXALATE
     Indication: CONSTIPATION
     Route: 048
     Dates: start: 20150903
  7. PROBIOTIC LAB4 CONTAINING LACTOBACILLUS AND ACIDOPHILUS [Concomitant]
     Indication: GASTRIC DISORDER
     Dosage: TWO TIMES A DAY
     Route: 048
  8. VITAMIN B COMPLEX [Suspect]
     Active Substance: CYANOCOBALAMIN\DEXPANTHENOL\NIACINAMIDE\PYRIDOXINE HYDROCHLORIDE\RIBOFLAVIN 5^-PHOSPHATE SODIUM\THIAMINE HYDROCHLORIDE\VITAMIN B COMPLEX
     Dosage: DAILY
     Route: 048
  9. OXYCONTIN TIME RELEASE [Concomitant]
     Indication: PAIN
     Route: 048
     Dates: start: 2011
  10. CLONAZEPAM. [Concomitant]
     Active Substance: CLONAZEPAM
     Indication: ANXIETY
     Route: 048
  11. CLONAZEPAM. [Concomitant]
     Active Substance: CLONAZEPAM
     Indication: DEPRESSION
     Route: 048
  12. CLOBETASOL [Concomitant]
     Active Substance: CLOBETASOL
     Indication: PSORIASIS
     Route: 061
     Dates: start: 2012
  13. CLONAZEPAM. [Concomitant]
     Active Substance: CLONAZEPAM
     Indication: TREMOR
     Route: 048
  14. CLINDAMYCIN [Concomitant]
     Active Substance: CLINDAMYCIN\CLINDAMYCIN PHOSPHATE
     Indication: INGROWN HAIR
     Route: 061
     Dates: start: 2012
  15. MIRALAX [Concomitant]
     Active Substance: POLYETHYLENE GLYCOL 3350
  16. GABAPENTIN. [Concomitant]
     Active Substance: GABAPENTIN
     Indication: MIGRAINE
     Route: 048
  17. ALFALFA [Concomitant]
     Active Substance: ALFALFA
     Indication: WEIGHT DECREASED
     Route: 048

REACTIONS (17)
  - Weight decreased [Unknown]
  - Migraine [Unknown]
  - Agitation [Unknown]
  - Ingrown hair [Unknown]
  - Spondylitis [Unknown]
  - Insomnia [Unknown]
  - Intervertebral disc degeneration [Unknown]
  - Eye irritation [Unknown]
  - Psoriasis [Unknown]
  - Eye swelling [Unknown]
  - Pollakiuria [Unknown]
  - Drug ineffective [Unknown]
  - Constipation [Unknown]
  - Hormone level abnormal [Unknown]
  - Nasal discomfort [Unknown]
  - Diarrhoea [Unknown]
  - Gastrooesophageal reflux disease [Unknown]

NARRATIVE: CASE EVENT DATE: 201509
